FAERS Safety Report 6896704-1 (Version None)
Quarter: 2010Q3

REPORT INFORMATION
  Report Type: 
  Country: None (occurrence: None)
  Receive Date: 20100802
  Receipt Date: 20070204
  Transmission Date: 20110219
  Serious: No
  Sender: FDA-Public Use
  Company Number: US-PFIZER INC-2007009047

PATIENT
  Sex: Female
  Weight: 106.6 kg

DRUGS (6)
  1. LYRICA [Suspect]
     Indication: PAIN
     Dates: start: 20070130, end: 20070305
  2. LIPITOR [Concomitant]
     Indication: HYPERTENSION
     Dates: start: 19970101
  3. HYDROCHLOROTHIAZIDE [Concomitant]
     Dates: start: 20040101
  4. LISINOPRIL [Concomitant]
  5. AMBIEN [Concomitant]
  6. TYLENOL [Concomitant]

REACTIONS (7)
  - DYSPNOEA [None]
  - EUPHORIC MOOD [None]
  - FATIGUE [None]
  - HEART RATE INCREASED [None]
  - MUSCULAR WEAKNESS [None]
  - PAIN [None]
  - WEIGHT INCREASED [None]
